FAERS Safety Report 6072299-X (Version None)
Quarter: 2009Q1

REPORT INFORMATION
  Report Type: 
  Country: None (occurrence: None)
  Receive Date: 20090210
  Receipt Date: 20090204
  Transmission Date: 20090719
  Serious: Yes (Hospitalization)
  Sender: FDA-Public Use
  Company Number: FR-MERCK-0902FRA00011

PATIENT
  Age: 36 Year
  Sex: Female

DRUGS (5)
  1. CRIXIVAN [Suspect]
     Indication: HIV INFECTION
     Route: 048
     Dates: start: 19980915, end: 20061101
  2. LAMIVUDINE AND ZIDOVUDINE [Concomitant]
     Indication: HIV INFECTION
     Route: 048
     Dates: start: 19980915, end: 20061101
  3. RITONAVIR [Suspect]
     Indication: HIV INFECTION
     Route: 048
     Dates: start: 20000516, end: 20061101
  4. BROMOCRIPTINE [Suspect]
     Indication: SUPPRESSED LACTATION
     Route: 048
     Dates: start: 20061029, end: 20061029
  5. CAFFEINE AND DIHYDROERGOCRYPTINE MESYLATE [Suspect]
     Indication: SUPPRESSED LACTATION
     Route: 048
     Dates: start: 20061030, end: 20061119

REACTIONS (8)
  - DIZZINESS [None]
  - DRUG INTERACTION [None]
  - DRY MOUTH [None]
  - HEADACHE [None]
  - HYPOTENSION [None]
  - MALAISE [None]
  - NAUSEA [None]
  - VOMITING [None]
